FAERS Safety Report 25387726 (Version 3)
Quarter: 2025Q4

REPORT INFORMATION
  Report Type: Spontaneous
  Country: US (occurrence: US)
  Receive Date: 20250603
  Receipt Date: 20251212
  Transmission Date: 20260117
  Serious: Yes (Hospitalization, Other)
  Sender: SANOFI AVENTIS
  Company Number: US-SA-2025SA154049

PATIENT
  Age: 41 Year
  Sex: Female

DRUGS (1)
  1. DUPIXENT [Suspect]
     Active Substance: DUPILUMAB
     Indication: Eosinophilic oesophagitis
     Dosage: 300 MG, QW
     Route: 058
     Dates: start: 202504

REACTIONS (7)
  - Ileus [Not Recovered/Not Resolved]
  - Oesophageal food impaction [Unknown]
  - Product dose omission issue [Unknown]
  - Dysphagia [Recovering/Resolving]
  - Retching [Recovering/Resolving]
  - Oesophageal disorder [Unknown]
  - Eosinophilic oesophagitis [Recovering/Resolving]

NARRATIVE: CASE EVENT DATE: 20250101
